FAERS Safety Report 21149592 (Version 1)
Quarter: 2022Q3

REPORT INFORMATION
  Report Type: Spontaneous
  Country: RU (occurrence: None)
  Receive Date: 20220729
  Receipt Date: 20220729
  Transmission Date: 20221027
  Serious: Yes (Other)
  Sender: FDA-Public Use
  Company Number: 2022A265147

PATIENT
  Age: 78 Year
  Sex: Female
  Weight: 104 kg

DRUGS (6)
  1. DAPAGLIFLOZIN [Suspect]
     Active Substance: DAPAGLIFLOZIN
     Indication: Type 2 diabetes mellitus
     Route: 048
     Dates: start: 20220712, end: 20220719
  2. DAPAGLIFLOZIN [Suspect]
     Active Substance: DAPAGLIFLOZIN
     Indication: Cardiovascular disorder
     Route: 048
     Dates: start: 20220712, end: 20220719
  3. LASIX [Concomitant]
     Active Substance: FUROSEMIDE
     Route: 065
     Dates: start: 20220715
  4. LORISTA H (LOSARTAN + HYDROCHLOROTHIAZIDE) [Concomitant]
     Route: 065
  5. INSULIN PREPARATIONS (THE HCP DID NOT REMEMBER EXACT PREPARATIONS) [Concomitant]
     Route: 065
  6. BERLITHION (THIOCTIC ACID) [Concomitant]
     Route: 065

REACTIONS (4)
  - Ascites [Recovering/Resolving]
  - Pulmonary congestion [Recovered/Resolved]
  - Blood pressure decreased [Recovered/Resolved]
  - Oedema peripheral [Recovering/Resolving]

NARRATIVE: CASE EVENT DATE: 20220715
